FAERS Safety Report 23868710 (Version 1)
Quarter: 2024Q2

REPORT INFORMATION
  Report Type: Spontaneous
  Country: US (occurrence: US)
  Receive Date: 20240517
  Receipt Date: 20240517
  Transmission Date: 20240716
  Serious: No
  Sender: FDA-Public Use
  Company Number: US-Stemline Therapeutics, Inc.-2024ST002067

PATIENT
  Age: 71 Year
  Sex: Female

DRUGS (2)
  1. ORSERDU [Suspect]
     Active Substance: ELACESTRANT
     Indication: Product used for unknown indication
     Route: 048
     Dates: start: 20230518, end: 20240418
  2. LEXAPRO [Concomitant]
     Active Substance: ESCITALOPRAM OXALATE
     Indication: Product used for unknown indication

REACTIONS (12)
  - Tinnitus [Unknown]
  - Osteoarthritis [Unknown]
  - Malaise [Unknown]
  - Haemoglobin increased [Unknown]
  - Anxiety [Unknown]
  - Red blood cell count decreased [Unknown]
  - Pain in extremity [Unknown]
  - Arthralgia [Unknown]
  - Back pain [Unknown]
  - Nausea [Unknown]
  - Fatigue [Unknown]
  - Disease progression [Unknown]
